FAERS Safety Report 20382976 (Version 4)
Quarter: 2022Q1

REPORT INFORMATION
  Report Type: Report from Study
  Country: ES (occurrence: None)
  Receive Date: 20220127
  Receipt Date: 20220225
  Transmission Date: 20220423
  Serious: Yes (Hospitalization)
  Sender: FDA-Public Use
  Company Number: ES-ROCHE-2979460

PATIENT
  Age: 62 Year
  Sex: Female
  Weight: 66.2 kg

DRUGS (38)
  1. BEVACIZUMAB [Suspect]
     Active Substance: BEVACIZUMAB
     Indication: Bile duct cancer
     Dosage: ON 25/NOV/2021, PATIENT RECEIVED MOST RECENT DOSE OF BLINDED BEVACIZUMAB PRIOR TO SAE?ON 23/DEC/2021
     Route: 042
     Dates: start: 20210811
  2. ATEZOLIZUMAB [Suspect]
     Active Substance: ATEZOLIZUMAB
     Indication: Bile duct cancer
     Dosage: ON 25/NOV/2021, PATIENT RECEIVED MOST RECENT DOSE OF ATEZOLIZUMAB AT 1200 MG PRIOR TO SAE
     Route: 041
     Dates: start: 20210811
  3. CISPLATIN [Suspect]
     Active Substance: CISPLATIN
     Indication: Bile duct cancer
     Dosage: ON DAYS 1 AND 8 OF EACH 21-DAY CYCLE FOR CYCLES 1-8?ON 02/DEC/2021, PATIENT RECEIVED MOST RECENT DOS
     Route: 042
     Dates: start: 20210811
  4. GEMCITABINE [Suspect]
     Active Substance: GEMCITABINE
     Indication: Bile duct cancer
     Dosage: ON DAYS 1 AND 8 OF EACH 21-DAY CYCLE FOR CYCLES 1-8?ON 02/DEC/2021, PATIENT RECEIVED MOST RECENT DOS
     Route: 042
     Dates: start: 20210811
  5. URSOBILANE [Concomitant]
     Indication: Blood cholesterol increased
  6. FLUOXETINE [Concomitant]
     Active Substance: FLUOXETINE HYDROCHLORIDE
     Indication: Anxiety
  7. ENALAPRIL [Concomitant]
     Active Substance: ENALAPRIL
     Indication: Hypertension
  8. EZETIMIBE [Concomitant]
     Active Substance: EZETIMIBE
     Indication: Blood cholesterol increased
  9. LEXATIN (SPAIN) [Concomitant]
     Indication: Prophylaxis
  10. ACETAMINOPHEN [Concomitant]
     Active Substance: ACETAMINOPHEN
     Indication: Pain prophylaxis
  11. NOLOTIL [Concomitant]
     Indication: Pain prophylaxis
  12. LINAGLIPTIN [Concomitant]
     Active Substance: LINAGLIPTIN
     Indication: Diabetes mellitus
  13. ESOMEPRAZOLE [Concomitant]
     Active Substance: ESOMEPRAZOLE
     Indication: Abdominal pain upper
     Dosage: YES
     Dates: start: 20211104
  14. MOVICOL [Concomitant]
     Active Substance: POLYETHYLENE GLYCOL 3350\POTASSIUM CHLORIDE\SODIUM BICARBONATE\SODIUM CHLORIDE
     Indication: Constipation
     Dosage: YES
     Dates: start: 20210923
  15. SYNALAR [Concomitant]
     Active Substance: FLUOCINOLONE ACETONIDE
     Indication: Haemorrhoids
     Dosage: NO
     Dates: start: 20210930, end: 20211114
  16. ONDANSETRON [Concomitant]
     Active Substance: ONDANSETRON
     Indication: Prophylaxis of nausea and vomiting
     Dosage: GIVEN FOR PROPHYLAXIS IS YES ;ONGOING: NO
     Dates: start: 20211203, end: 20211206
  17. ONDANSETRON [Concomitant]
     Active Substance: ONDANSETRON
     Dates: start: 20211223, end: 20211223
  18. ONDANSETRON [Concomitant]
     Active Substance: ONDANSETRON
     Dates: start: 20211111, end: 20211114
  19. ONDANSETRON [Concomitant]
     Active Substance: ONDANSETRON
     Dates: start: 20211125, end: 20211128
  20. MANNITOL [Concomitant]
     Active Substance: MANNITOL
     Indication: Prophylaxis of nausea and vomiting
     Dosage: GIVEN FOR PROPHYLAXIS IS YES ;ONGOING: NO
     Dates: start: 20211203, end: 20211203
  21. MANNITOL [Concomitant]
     Active Substance: MANNITOL
     Dates: start: 20211223, end: 20211223
  22. MANNITOL [Concomitant]
     Active Substance: MANNITOL
     Dates: start: 20211111, end: 20211111
  23. MANNITOL [Concomitant]
     Active Substance: MANNITOL
     Dates: start: 20211125, end: 20211125
  24. HUMAN RED BLOOD CELL [Concomitant]
     Active Substance: HUMAN RED BLOOD CELL
     Indication: Anaemia
     Dosage: NO
     Dates: start: 20211202, end: 20211202
  25. HUMAN RED BLOOD CELL [Concomitant]
     Active Substance: HUMAN RED BLOOD CELL
     Dates: start: 20211210, end: 20211210
  26. FUROSEMIDE [Concomitant]
     Active Substance: FUROSEMIDE
     Indication: Prophylaxis
     Dosage: GIVEN FOR PROPHYLAXIS IS YES ;ONGOING: NO
     Dates: start: 20211202, end: 20211202
  27. CIPROFLOXACIN [Concomitant]
     Active Substance: CIPROFLOXACIN
     Dates: start: 20211214, end: 20211219
  28. CIPROFLOXACIN [Concomitant]
     Active Substance: CIPROFLOXACIN
     Route: 048
     Dates: start: 20211219
  29. METHYLPREDNISOLONE [Concomitant]
     Active Substance: METHYLPREDNISOLONE
     Indication: Antiviral prophylaxis
     Route: 048
     Dates: start: 20211221, end: 20211223
  30. METHYLPREDNISOLONE [Concomitant]
     Active Substance: METHYLPREDNISOLONE
     Route: 048
     Dates: start: 20211223, end: 20211229
  31. PRAVASTATIN [Concomitant]
     Active Substance: PRAVASTATIN
  32. METOCLOPRAMIDE [Concomitant]
     Active Substance: METOCLOPRAMIDE
  33. SULFAMETHOXAZOLE\TRIMETHOPRIM [Concomitant]
     Active Substance: SULFAMETHOXAZOLE\TRIMETHOPRIM
     Dates: start: 20211230
  34. DEXAMETHASONE [Concomitant]
     Active Substance: DEXAMETHASONE
     Indication: Hyperbilirubinaemia
     Dosage: GIVEN FOR PROPHYLAXIS IS YES ;ONGOING: NO
     Route: 042
     Dates: start: 20211203, end: 20211203
  35. DEXAMETHASONE [Concomitant]
     Active Substance: DEXAMETHASONE
     Route: 042
     Dates: start: 20211223, end: 20211223
  36. DEXAMETHASONE [Concomitant]
     Active Substance: DEXAMETHASONE
     Route: 042
     Dates: start: 20211111, end: 20211111
  37. DEXAMETHASONE [Concomitant]
     Active Substance: DEXAMETHASONE
     Route: 042
     Dates: start: 20211125, end: 20211125
  38. DEXAMETHASONE [Concomitant]
     Active Substance: DEXAMETHASONE
     Route: 042
     Dates: start: 20211218, end: 20211222

REACTIONS (3)
  - Septic shock [Recovering/Resolving]
  - Hepatitis [Recovering/Resolving]
  - Upper gastrointestinal haemorrhage [Recovering/Resolving]

NARRATIVE: CASE EVENT DATE: 20211210
